FAERS Safety Report 13188128 (Version 2)
Quarter: 2021Q3

REPORT INFORMATION
  Report Type: Other
  Country: CA (occurrence: CA)
  Receive Date: 20170206
  Receipt Date: 20210814
  Transmission Date: 20211014
  Serious: Yes (Hospitalization, Other)
  Sender: FDA-Public Use
  Company Number: CA-GLENMARK PHARMACEUTICALS-2017GMK026179

PATIENT

DRUGS (13)
  1. FERROUS SULFATE. [Suspect]
     Active Substance: FERROUS SULFATE
     Indication: ANAEMIA
     Dosage: 300 MILLIGRAM, TID
     Route: 048
  2. VITALUX [ASCORBIC ACID;BETACAROTENE;COPPER;RIBOFLAVIN;SELENIUM;TOCOFER [Suspect]
     Active Substance: MINERALS\VITAMINS
     Indication: MACULAR DEGENERATION
     Dosage: UNK, BID
     Route: 048
  3. TEMAZEPAM. [Suspect]
     Active Substance: TEMAZEPAM
     Indication: INSOMNIA
     Dosage: 30 MILLIGRAM, OD
     Route: 048
  4. CLONAZEPAM. [Suspect]
     Active Substance: CLONAZEPAM
     Indication: DEPRESSION
     Dosage: 0.5 MILLIGRAM, TID
     Route: 048
  5. DOMPERIDONE [Suspect]
     Active Substance: DOMPERIDONE
     Indication: IRRITABLE BOWEL SYNDROME
     Dosage: 10 MILLIGRAM, BID
     Route: 048
  6. GABAPENTIN. [Suspect]
     Active Substance: GABAPENTIN
     Indication: PRODUCT USED FOR UNKNOWN INDICATION
     Dosage: 600 MILLIGRAM, BID
     Route: 048
  7. GABAPENTIN. [Suspect]
     Active Substance: GABAPENTIN
     Indication: FIBROMYALGIA
     Dosage: 600 MILLIGRAM, BID
     Route: 048
  8. TYLENOL WITH CODEINE [Suspect]
     Active Substance: ACETAMINOPHEN\CODEINE PHOSPHATE
     Indication: PRODUCT USED FOR UNKNOWN INDICATION
     Dosage: 2 DOSAGE FORM, TID
     Route: 048
  9. GABAPENTIN. [Suspect]
     Active Substance: GABAPENTIN
     Dosage: 300 MILLIGRAM, OD
     Route: 048
  10. ESCITALOPRAM [Suspect]
     Active Substance: ESCITALOPRAM OXALATE
     Indication: DEPRESSION
     Dosage: 20 MILLIGRAM
     Route: 048
  11. IRON SULPHATE [Suspect]
     Active Substance: FERROUS SULFATE ANHYDROUS
     Indication: ANAEMIA
     Dosage: 300 MILLIGRAM, OD
     Route: 065
  12. ACETAMINOPHEN + COD. PHOSP. [Suspect]
     Active Substance: ACETAMINOPHEN\CODEINE PHOSPHATE
     Indication: BACK PAIN
     Dosage: 2 DOSAGE FORM, TID
     Route: 048
  13. WELLBUTRIN [Suspect]
     Active Substance: BUPROPION HYDROCHLORIDE
     Indication: DEPRESSION
     Dosage: 150 MILLIGRAM, BID
     Route: 048

REACTIONS (5)
  - Condition aggravated [Recovering/Resolving]
  - Dehydration [Recovering/Resolving]
  - Product use in unapproved indication [Unknown]
  - Mental disorder [Recovering/Resolving]
  - Dysphagia [Recovering/Resolving]
